FAERS Safety Report 18595267 (Version 1)
Quarter: 2020Q4

REPORT INFORMATION
  Report Type: Spontaneous
  Country: CA (occurrence: CA)
  Receive Date: 20201209
  Receipt Date: 20201209
  Transmission Date: 20210114
  Serious: Yes (Other)
  Sender: FDA-Public Use
  Company Number: CA-TEVA-2020-CA-1855224

PATIENT
  Age: 49 Year
  Sex: Female

DRUGS (1)
  1. TEVA-FENTANYL [Suspect]
     Active Substance: FENTANYL
     Route: 062

REACTIONS (10)
  - Incorrect dose administered [Unknown]
  - General physical health deterioration [Unknown]
  - Product quality issue [Unknown]
  - Overdose [Unknown]
  - Nausea [Unknown]
  - Mental impairment [Unknown]
  - Disturbance in attention [Unknown]
  - Somnolence [Unknown]
  - Pain [Unknown]
  - Hyperhidrosis [Unknown]
